FAERS Safety Report 20926402 (Version 2)
Quarter: 2022Q2

REPORT INFORMATION
  Report Type: Report from Study
  Country: US (occurrence: US)
  Receive Date: 20220607
  Receipt Date: 20220621
  Transmission Date: 20220720
  Serious: Yes (Other)
  Sender: FDA-Public Use
  Company Number: US-BRISTOL-MYERS SQUIBB COMPANY-2022-039044

PATIENT
  Age: 42 Year
  Sex: Female

DRUGS (7)
  1. ORENCIA [Suspect]
     Active Substance: ABATACEPT
     Indication: Rheumatoid arthritis
     Route: 058
     Dates: start: 20220325
  2. ORENCIA [Suspect]
     Active Substance: ABATACEPT
     Dosage: ONCE PER WEEK
     Route: 058
  3. LYRICA [Concomitant]
     Active Substance: PREGABALIN
     Indication: Product used for unknown indication
     Route: 065
  4. ZANAFLEX [Concomitant]
     Active Substance: TIZANIDINE HYDROCHLORIDE
     Indication: Product used for unknown indication
     Route: 065
  5. BACLOFEN [Concomitant]
     Active Substance: BACLOFEN
     Indication: Product used for unknown indication
     Route: 065
  6. COLCHICINE [Concomitant]
     Active Substance: COLCHICINE
     Indication: Product used for unknown indication
     Route: 065
  7. TORADOL [Concomitant]
     Active Substance: KETOROLAC TROMETHAMINE
     Indication: Product used for unknown indication
     Route: 065

REACTIONS (9)
  - Respiratory tract congestion [Unknown]
  - Rhinorrhoea [Unknown]
  - Cough [Unknown]
  - Dyspnoea [Unknown]
  - Rheumatoid arthritis [Unknown]
  - Neck pain [Unknown]
  - Arthralgia [Unknown]
  - White blood cell count decreased [Unknown]
  - Systemic lupus erythematosus [Unknown]
